FAERS Safety Report 8652522 (Version 3)
Quarter: 2012Q4

REPORT INFORMATION
  Report Type: Report from Study
  Country: JP (occurrence: JP)
  Receive Date: 20120706
  Receipt Date: 20121025
  Transmission Date: 20130627
  Serious: Yes (Hospitalization)
  Sender: FDA-Public Use
  Company Number: JP-ROCHE-1081851

PATIENT
  Age: 70 Year
  Sex: Female
  Weight: 55.2 kg

DRUGS (4)
  1. ADO-TRASTUZUMAB EMTANSINE [Suspect]
     Indication: BREAST CANCER
     Route: 042
     Dates: start: 20100906, end: 20120507
  2. PERTUZUMAB [Suspect]
     Indication: BREAST CANCER
     Route: 042
     Dates: start: 20100906, end: 20100906
  3. PERTUZUMAB [Suspect]
     Indication: BREAST CANCER
     Route: 042
     Dates: end: 20120507
  4. MOMETASONE FUROATE OINTMENT [Concomitant]
     Indication: RASH
     Dosage: Necessity and proper quantity
     Route: 061
     Dates: start: 20120328

REACTIONS (1)
  - Epistaxis [Recovered/Resolved]
